FAERS Safety Report 11196881 (Version 1)
Quarter: 2015Q2

REPORT INFORMATION
  Report Type: Spontaneous
  Country: GB (occurrence: GB)
  Receive Date: 20150617
  Receipt Date: 20150617
  Transmission Date: 20150821
  Serious: Yes (Other)
  Sender: FDA-Public Use
  Company Number: GB-AMGEN-GBRSP2015057635

PATIENT
  Age: 72 Year
  Sex: Female
  Weight: 56.24 kg

DRUGS (9)
  1. PROLIA [Suspect]
     Active Substance: DENOSUMAB
     Indication: OSTEOPOROSIS
     Dosage: 60 MG, UNK
     Route: 051
     Dates: start: 20150518
  2. CALCIUM + VITAMIN D                /01483701/ [Concomitant]
     Active Substance: CALCIUM\VITAMIN D
  3. COD LIVER OIL [Concomitant]
     Active Substance: COD LIVER OIL
  4. PROLIA [Suspect]
     Active Substance: DENOSUMAB
     Indication: BLOOD CALCIUM DECREASED
  5. BOVINE-FASTACT [Concomitant]
  6. SIMVASTATIN. [Concomitant]
     Active Substance: SIMVASTATIN
  7. GARLIC                             /01570501/ [Concomitant]
  8. INSULIN ISOPHANE BOVINE [Concomitant]
     Active Substance: INSULIN BEEF
  9. VITAMIN D3 [Concomitant]
     Active Substance: CHOLECALCIFEROL

REACTIONS (13)
  - Dizziness postural [Recovering/Resolving]
  - Hypotension [Unknown]
  - Pain in jaw [Recovering/Resolving]
  - Chest discomfort [Recovering/Resolving]
  - Paraesthesia [Unknown]
  - Musculoskeletal pain [Not Recovered/Not Resolved]
  - Pain in extremity [Not Recovered/Not Resolved]
  - Blood glucose increased [Recovering/Resolving]
  - Asthenia [Recovering/Resolving]
  - Pelvic pain [Not Recovered/Not Resolved]
  - Paraesthesia oral [Unknown]
  - Palpitations [Unknown]
  - Ear disorder [Not Recovered/Not Resolved]

NARRATIVE: CASE EVENT DATE: 2015
